FAERS Safety Report 9412126 (Version 3)
Quarter: 2013Q3

REPORT INFORMATION
  Report Type: Spontaneous
  Country: JP (occurrence: JP)
  Receive Date: 20130722
  Receipt Date: 20130916
  Transmission Date: 20140515
  Serious: Yes (Hospitalization, Other)
  Sender: FDA-Public Use
  Company Number: JP-BAYER-2013-085982

PATIENT
  Age: 62 Year
  Sex: Male

DRUGS (2)
  1. STIVARGA [Suspect]
     Dosage: 120 MG, QD
     Route: 048
     Dates: start: 20130703, end: 20130710
  2. STIVARGA [Suspect]
     Dosage: 120 MG, QD
     Route: 048
     Dates: end: 20130910

REACTIONS (2)
  - Tremor [Recovering/Resolving]
  - Palmar-plantar erythrodysaesthesia syndrome [Not Recovered/Not Resolved]
